FAERS Safety Report 14805649 (Version 1)
Quarter: 2018Q2

REPORT INFORMATION
  Report Type: Spontaneous
  Country: IN (occurrence: IN)
  Receive Date: 20180425
  Receipt Date: 20180425
  Transmission Date: 20180711
  Serious: Yes (Hospitalization, Other)
  Sender: FDA-Public Use
  Company Number: IN-DRREDDYS-USA/IND/18/0096734

PATIENT
  Age: 65 Year
  Sex: Male

DRUGS (9)
  1. CIPROFLOXACIN. [Suspect]
     Active Substance: CIPROFLOXACIN
     Indication: DIARRHOEA
  2. CIFRAN [Suspect]
     Active Substance: CIPROFLOXACIN
     Indication: VOMITING
     Route: 065
  3. TINIDAZOLE. [Concomitant]
     Active Substance: TINIDAZOLE
     Indication: DIARRHOEA
  4. TINIDAZOLE. [Concomitant]
     Active Substance: TINIDAZOLE
     Indication: VOMITING
  5. CIPROFLOXACIN. [Suspect]
     Active Substance: CIPROFLOXACIN
     Indication: PYREXIA
  6. CIFRAN [Suspect]
     Active Substance: CIPROFLOXACIN
     Indication: PYREXIA
  7. TINIDAZOLE. [Concomitant]
     Active Substance: TINIDAZOLE
     Indication: PYREXIA
     Route: 065
  8. CIPROFLOXACIN. [Suspect]
     Active Substance: CIPROFLOXACIN
     Indication: VOMITING
     Route: 065
  9. CIFRAN [Suspect]
     Active Substance: CIPROFLOXACIN
     Indication: DIARRHOEA

REACTIONS (7)
  - Aspartate aminotransferase increased [Unknown]
  - Blood urea increased [Unknown]
  - Blood lactate dehydrogenase increased [Unknown]
  - Condition aggravated [Recovering/Resolving]
  - Myoglobin urine present [Unknown]
  - Blood creatine increased [Unknown]
  - Stevens-Johnson syndrome [Recovering/Resolving]
